FAERS Safety Report 5911412-9 (Version None)
Quarter: 2008Q4

REPORT INFORMATION
  Report Type: 
  Country: None (occurrence: None)
  Receive Date: 20081007
  Receipt Date: 20080925
  Transmission Date: 20090506
  Serious: Yes (Hospitalization, Other)
  Sender: FDA-Public Use
  Company Number: US-PFIZER INC-2008081272

PATIENT
  Sex: Male
  Weight: 100 kg

DRUGS (14)
  1. TIKOSYN [Suspect]
     Indication: ATRIAL FIBRILLATION
  2. COLACE [Concomitant]
  3. MULTI-VITAMINS [Concomitant]
  4. PROTONIX [Concomitant]
  5. HYTRIN [Concomitant]
  6. COUMADIN [Concomitant]
  7. TYLENOL (CAPLET) [Concomitant]
  8. BENADRYL [Concomitant]
  9. MILK OF MAGNESIA [Concomitant]
  10. MORPHINE [Concomitant]
  11. PERCOCET [Concomitant]
  12. ZOFRAN [Concomitant]
  13. AMBIEN [Concomitant]
  14. POTASSIUM CHLORIDE [Concomitant]

REACTIONS (2)
  - ATRIAL FIBRILLATION [None]
  - KNEE OPERATION [None]
